FAERS Safety Report 5869396-8 (Version None)
Quarter: 2008Q3

REPORT INFORMATION
  Report Type: 
  Country: None (occurrence: None)
  Receive Date: 20080903
  Receipt Date: 20080822
  Transmission Date: 20090109
  Serious: No
  Sender: FDA-Public Use
  Company Number: US-BOEHRINGER INGELHEIM GMBH, GERMANY-2008-BP-13584BP

PATIENT
  Sex: Male

DRUGS (16)
  1. SPIRIVA [Suspect]
     Indication: EMPHYSEMA
     Route: 055
     Dates: end: 20080501
  2. SPIRIVA [Suspect]
     Route: 055
     Dates: start: 20080501
  3. ALBUTEROL [Concomitant]
     Indication: EMPHYSEMA
     Route: 055
  4. LASIX [Concomitant]
     Indication: HYPERTENSION
     Route: 048
  5. AMARIL [Concomitant]
     Route: 048
  6. INSULIN [Concomitant]
     Indication: DIABETES MELLITUS
  7. THEOPHYLLINE [Concomitant]
     Indication: EMPHYSEMA
     Route: 048
  8. MAGNESIUM OXIDE [Concomitant]
     Route: 048
  9. METOPROLOL TARTRATE [Concomitant]
     Route: 048
  10. LEVAQUIN [Concomitant]
     Route: 048
  11. NORVASC [Concomitant]
     Indication: HYPERTENSION
     Route: 048
  12. LORAZEPAM [Concomitant]
     Route: 048
  13. MUCINEX [Concomitant]
     Indication: EMPHYSEMA
     Route: 048
  14. ADVAIR DISKUS 100/50 [Concomitant]
     Indication: EMPHYSEMA
     Route: 055
  15. PLAVIX [Concomitant]
     Route: 048
  16. ASPIRIN [Concomitant]
     Route: 048

REACTIONS (1)
  - HERPES VIRUS INFECTION [None]
